FAERS Safety Report 11279709 (Version 3)
Quarter: 2015Q4

REPORT INFORMATION
  Report Type: Spontaneous
  Country: SE (occurrence: SE)
  Receive Date: 20150717
  Receipt Date: 20151008
  Transmission Date: 20160304
  Serious: Yes (Other)
  Sender: FDA-Public Use
  Company Number: SE-NOVOPROD-456205

PATIENT
  Age: 68 Year
  Sex: Male

DRUGS (20)
  1. METOPROLOL ORION [Concomitant]
     Active Substance: METOPROLOL
     Dosage: 50 MG, QD
  2. ISOSORBIDE MONONITRATE. [Concomitant]
     Active Substance: ISOSORBIDE MONONITRATE
     Dosage: 60 MG, QD
  3. WARFARIN ORION [Concomitant]
     Active Substance: WARFARIN
     Dosage: 7.50 MG, QD (2.50 MG X 3)
  4. INSULATARD FLEXPEN [Suspect]
     Active Substance: INSULIN HUMAN
     Indication: DIABETES MELLITUS
     Dosage: 10 IU, BID
     Route: 058
     Dates: start: 20150626
  5. GLIBENKLAMID RECIP [Concomitant]
     Dosage: 35 MG, QD
  6. IMDUR [Concomitant]
     Active Substance: ISOSORBIDE MONONITRATE
     Dosage: 60 MG, QD
  7. INEGY [Concomitant]
     Active Substance: EZETIMIBE\SIMVASTATIN
     Dosage: UNK, (10 MG / 20 MG ONE PER DAY)
  8. SIFROL [Concomitant]
     Active Substance: PRAMIPEXOLE
     Dosage: 0.15 MG, QD
  9. NITROLINGUAL [Concomitant]
     Active Substance: NITROGLYCERIN
     Dosage: 0.40 MG, QD
  10. ENALAPRIL COMP [Concomitant]
     Active Substance: ENALAPRIL MALEATE\HYDROCHLOROTHIAZIDE
     Dosage: UNK (20/12,5 MG ONE PER DAY)
  11. FOLACIN                            /00024201/ [Concomitant]
     Active Substance: FOLIC ACID
     Dosage: 1.00 MG, QD
  12. TREO COMP                          /00182101/ [Concomitant]
     Dosage: UNK (POST MERIDIEM)
  13. STILNOCT [Concomitant]
     Active Substance: ZOLPIDEM TARTRATE
     Dosage: 10 MG, QD
  14. SIMVASTATIN STADA [Concomitant]
     Dosage: 20 MG, QD
  15. STESOLID [Concomitant]
     Active Substance: DIAZEPAM
     Dosage: 10 MG, QD
  16. CLOPIDOGREL ORION [Concomitant]
     Dosage: 75 MG, QD
  17. LOGIMAX [Concomitant]
     Active Substance: FELODIPINE\METOPROLOL SUCCINATE
     Dosage: 50 MG, QD
  18. JANUVIA [Concomitant]
     Active Substance: SITAGLIPTIN PHOSPHATE
     Dosage: 100 MG, QD
  19. BEHEPAN                            /00056201/ [Concomitant]
     Dosage: 1 MG, QD
  20. METFORMIN [Concomitant]
     Active Substance: METFORMIN HYDROCHLORIDE
     Dosage: 2500 MG, QD (500 MG 2X1X2)

REACTIONS (16)
  - Vomiting [Not Recovered/Not Resolved]
  - Headache [Not Recovered/Not Resolved]
  - Rash generalised [Not Recovered/Not Resolved]
  - Pollakiuria [Not Recovered/Not Resolved]
  - Fatigue [Not Recovered/Not Resolved]
  - Palpitations [Not Recovered/Not Resolved]
  - Nausea [Not Recovered/Not Resolved]
  - Dizziness [Not Recovered/Not Resolved]
  - Joint swelling [Not Recovered/Not Resolved]
  - Injection site pruritus [Not Recovered/Not Resolved]
  - Injection site swelling [Not Recovered/Not Resolved]
  - Cold sweat [Not Recovered/Not Resolved]
  - Feeling hot [Not Recovered/Not Resolved]
  - Nightmare [Not Recovered/Not Resolved]
  - Loss of consciousness [Recovered/Resolved]
  - Visual impairment [Not Recovered/Not Resolved]

NARRATIVE: CASE EVENT DATE: 2015
